FAERS Safety Report 4541759-2 (Version None)
Quarter: 2004Q4

REPORT INFORMATION
  Report Type: 
  Country: None (occurrence: None)
  Receive Date: 20041230
  Receipt Date: 20041223
  Transmission Date: 20050328
  Serious: Yes (Hospitalization)
  Sender: FDA-Public Use
  Company Number: 200414815FR

PATIENT
  Age: 65 Year
  Sex: Male

DRUGS (10)
  1. ARAVA [Suspect]
     Indication: RHEUMATOID ARTHRITIS
     Route: 048
     Dates: end: 20041017
  2. VOLTAREN [Suspect]
     Route: 048
     Dates: start: 20031101, end: 20041017
  3. CORTANCYL [Concomitant]
     Route: 048
     Dates: start: 20041001, end: 20041001
  4. VASTEN [Concomitant]
     Route: 048
  5. DOLIPRANE [Concomitant]
     Dosage: DOSE: 1000-1000-1000-1000
     Route: 048
  6. REMICADE [Concomitant]
     Route: 042
     Dates: start: 20041108, end: 20041108
  7. NOVONORM [Concomitant]
     Route: 048
  8. ACTONEL [Concomitant]
     Route: 048
  9. CACIT D3 [Concomitant]
     Dosage: DOSE: 0-1-0; DOSE UNIT: UNITS
     Route: 048
  10. OGAST [Concomitant]
     Dosage: DOSE: 0-0-1; DOSE UNIT: UNITS
     Route: 048

REACTIONS (4)
  - CLONUS [None]
  - HENOCH-SCHONLEIN PURPURA [None]
  - LEUKOCYTOCLASTIC VASCULITIS [None]
  - PURPURA [None]
